FAERS Safety Report 8953104 (Version 1)
Quarter: 2012Q4

REPORT INFORMATION
  Report Type: 
  Country: US (occurrence: US)
  Receive Date: 20121205
  Receipt Date: 20121205
  Transmission Date: 20130627
  Serious: Yes (Other)
  Sender: FDA-Public Use
  Company Number: US-PFIZER INC-2012305788

PATIENT
  Age: 49 Year
  Sex: Female
  Weight: 77.1 kg

DRUGS (14)
  1. NEURONTIN [Suspect]
     Indication: NERVE DAMAGE
     Dosage: 300 mg, 3x/day
     Dates: start: 2002
  2. NEURONTIN [Suspect]
     Indication: RESTLESS LEG SYNDROME
  3. NEURONTIN [Suspect]
     Indication: NERVE DAMAGE
  4. ASTELIN [Concomitant]
     Dosage: UNK
     Route: 045
  5. FLONASE [Concomitant]
     Dosage: UNK
     Route: 045
  6. BUMEX [Concomitant]
     Indication: FLUID RETENTION
     Dosage: UNK
  7. ZANTAC [Concomitant]
     Dosage: UNK
  8. OMEPRAZOLE [Concomitant]
     Dosage: UNK
  9. ADDERALL [Concomitant]
     Dosage: UNK
  10. ESTROGEN [Concomitant]
     Dosage: UNK
  11. XANAX [Concomitant]
     Dosage: UNK
  12. ADVAIR HFA [Concomitant]
     Indication: ASTHMA
     Dosage: UNK
  13. PROVENTIL [Concomitant]
     Indication: ASTHMA
     Dosage: UNK
  14. SYNTHROID [Concomitant]
     Indication: HYPOTHYROIDISM
     Dosage: UNK

REACTIONS (1)
  - Arthritis [Unknown]
